FAERS Safety Report 23509656 (Version 1)
Quarter: 2024Q1

REPORT INFORMATION
  Report Type: Spontaneous
  Country: PT (occurrence: PT)
  Receive Date: 20240210
  Receipt Date: 20240210
  Transmission Date: 20240410
  Serious: Yes (Life-Threatening, Hospitalization, Other)
  Sender: FDA-Public Use
  Company Number: None

PATIENT
  Age: 70 Year
  Sex: Male

DRUGS (4)
  1. BENDAMUSTINE [Suspect]
     Active Substance: BENDAMUSTINE
     Indication: Chronic lymphocytic leukaemia
     Dosage: 6 CYCLES OF R-BENDA TREATMENT
     Route: 042
     Dates: end: 201811
  2. RITUXIMAB [Suspect]
     Active Substance: RITUXIMAB
     Indication: Chronic lymphocytic leukaemia
     Route: 065
     Dates: start: 20230126
  3. RITUXIMAB [Suspect]
     Active Substance: RITUXIMAB
     Indication: Chronic lymphocytic leukaemia
     Dosage: IN A REGIMEN OF R-BENDA/6 CYCLES OF R-BENDA TREATMENT
     Route: 065
     Dates: end: 201811
  4. VENETOCLAX [Suspect]
     Active Substance: VENETOCLAX
     Indication: Chronic lymphocytic leukaemia
     Dosage: WAS PRESCRIBED 20MG BUT ADMINISTERED 200MG
     Route: 048
     Dates: start: 20230127, end: 20230128

REACTIONS (3)
  - Tumour lysis syndrome [Recovered/Resolved with Sequelae]
  - Overdose [Recovered/Resolved]
  - Depressed level of consciousness [Unknown]

NARRATIVE: CASE EVENT DATE: 20230128
